FAERS Safety Report 4566463-6 (Version None)
Quarter: 2005Q1

REPORT INFORMATION
  Report Type: 
  Country: None (occurrence: None)
  Receive Date: 20050201
  Receipt Date: 20050126
  Transmission Date: 20050727
  Serious: Yes (Hospitalization)
  Sender: FDA-Public Use
  Company Number: FR-BRISTOL-MYERS SQUIBB COMPANY-12842746

PATIENT
  Age: 59 Year
  Sex: Male

DRUGS (5)
  1. APROVEL [Suspect]
     Indication: HYPERTENSION
     Route: 048
  2. TANGANIL [Suspect]
     Indication: VERTIGO
     Route: 048
     Dates: start: 20041207
  3. VASTAREL [Suspect]
     Route: 048
     Dates: start: 20041207
  4. PRIMPERAN INJ [Suspect]
     Indication: NAUSEA
     Route: 048
     Dates: start: 20041207
  5. PRIMPERAN INJ [Suspect]
     Indication: VOMITING
     Route: 048
     Dates: start: 20041207

REACTIONS (10)
  - CONVULSION [None]
  - DEMYELINATION [None]
  - HEADACHE [None]
  - HYPONATRAEMIA [None]
  - INAPPROPRIATE ANTIDIURETIC HORMONE SECRETION [None]
  - LUNG NEOPLASM MALIGNANT [None]
  - MULTIPLE SCLEROSIS [None]
  - NAUSEA [None]
  - VERTIGO POSITIONAL [None]
  - VOMITING [None]
